FAERS Safety Report 7040827-3 (Version None)
Quarter: 2010Q4

REPORT INFORMATION
  Report Type: 
  Country: None (occurrence: None)
  Receive Date: 20101013
  Receipt Date: 20101005
  Transmission Date: 20110411
  Serious: No
  Sender: FDA-Public Use
  Company Number: 2009BI029690

PATIENT
  Sex: Female

DRUGS (1)
  1. TYSABRI [Suspect]
     Indication: MULTIPLE SCLEROSIS
     Route: 042
     Dates: start: 20080305, end: 20090511

REACTIONS (20)
  - ARTHRITIS [None]
  - BACK PAIN [None]
  - BALANCE DISORDER [None]
  - BLOOD CREATININE INCREASED [None]
  - CHEST PAIN [None]
  - DEPRESSION [None]
  - DRUG INEFFECTIVE [None]
  - FALL [None]
  - FATIGUE [None]
  - FEELING ABNORMAL [None]
  - FEELING COLD [None]
  - FEELING OF DESPAIR [None]
  - GAIT DISTURBANCE [None]
  - GENERAL SYMPTOM [None]
  - LOOSE TOOTH [None]
  - LOSS OF CONTROL OF LEGS [None]
  - MOBILITY DECREASED [None]
  - OVERWEIGHT [None]
  - SPONDYLITIS [None]
  - URINARY TRACT INFECTION [None]
